FAERS Safety Report 18321242 (Version 2)
Quarter: 2020Q3

REPORT INFORMATION
  Report Type: Spontaneous
  Country: RU (occurrence: RU)
  Receive Date: 20200929
  Receipt Date: 20200929
  Transmission Date: 20201103
  Serious: Yes (Other)
  Sender: FDA-Public Use
  Company Number: RU-009507513-2009RUS010115

PATIENT
  Age: 13 Year
  Sex: Male
  Weight: 69 kg

DRUGS (1)
  1. INVANZ [Suspect]
     Active Substance: ERTAPENEM SODIUM
     Indication: APPENDICITIS PERFORATED
     Dosage: 1 GRAM, QD
     Route: 041
     Dates: start: 20200904, end: 20200905

REACTIONS (1)
  - Dermatitis allergic [Recovering/Resolving]

NARRATIVE: CASE EVENT DATE: 20200905
